FAERS Safety Report 12634934 (Version 3)
Quarter: 2016Q4

REPORT INFORMATION
  Report Type: Report from Study
  Country: US (occurrence: US)
  Receive Date: 20160808
  Receipt Date: 20161116
  Transmission Date: 20170207
  Serious: Yes (Hospitalization)
  Sender: FDA-Public Use
  Company Number: US-SA-2016SA143534

PATIENT
  Age: 39 Year
  Sex: Female

DRUGS (2)
  1. DILAUDID [Concomitant]
     Active Substance: HYDROMORPHONE HYDROCHLORIDE
     Indication: PAIN
  2. LEMTRADA [Suspect]
     Active Substance: ALEMTUZUMAB
     Indication: MULTIPLE SCLEROSIS
     Route: 041
     Dates: start: 20160801, end: 20160801

REACTIONS (14)
  - Abdominal pain [Unknown]
  - Alopecia [Not Recovered/Not Resolved]
  - Headache [Unknown]
  - Dizziness [Unknown]
  - Platelet count decreased [Unknown]
  - Cold sweat [Recovered/Resolved]
  - Hypotension [Recovered/Resolved]
  - Blood creatinine increased [Recovered/Resolved]
  - Dyspnoea [Recovered/Resolved]
  - Nausea [Unknown]
  - Acute kidney injury [Recovered/Resolved]
  - Malaise [Recovered/Resolved]
  - Weight increased [Unknown]
  - Chronic kidney disease [Recovering/Resolving]

NARRATIVE: CASE EVENT DATE: 201608
